FAERS Safety Report 10058710 (Version 1)
Quarter: 2014Q2

REPORT INFORMATION
  Report Type: Spontaneous
  Country: US (occurrence: None)
  Receive Date: 20140402
  Receipt Date: 20140402
  Transmission Date: 20141212
  Serious: Yes (Death)
  Sender: FDA-Public Use
  Company Number: 2273468

PATIENT
  Age: 39 Year
  Sex: Male

DRUGS (10)
  1. AZITHROMYCIN [Suspect]
     Indication: TOXOPLASMOSIS
  2. AZITHROMYCIN [Suspect]
     Indication: MYCOBACTERIUM AVIUM COMPLEX INFECTION
  3. CEFEPIME HYDROCHLORIDE [Suspect]
     Indication: PNEUMONIA
  4. TENOFOVIR [Suspect]
     Indication: ACUTE HIV INFECTION
  5. EMTRICITABINE [Suspect]
     Indication: ACUTE HIV INFECTION
  6. LOPINAVIR W/RITONAVIR [Suspect]
     Indication: ACUTE HIV INFECTION
  7. DAPSONE [Suspect]
     Indication: MYCOBACTERIUM AVIUM COMPLEX INFECTION
  8. ETHAMBUTOL [Suspect]
     Indication: MYCOBACTERIUM AVIUM COMPLEX INFECTION
  9. DIVALPROEX [Suspect]
     Indication: CONVULSION
  10. ANTIBIOTIC [Suspect]
     Indication: SINUSITIS

REACTIONS (2)
  - Vanishing bile duct syndrome [None]
  - Cholestasis [None]
